FAERS Safety Report 7809153-6 (Version None)
Quarter: 2011Q4

REPORT INFORMATION
  Report Type: 
  Country: None (occurrence: None)
  Receive Date: 20111012
  Receipt Date: 20111004
  Transmission Date: 20120403
  Serious: Yes (Death)
  Sender: FDA-Public Use
  Company Number: GB-GENZYME-CLOF-1001819

PATIENT
  Sex: Female

DRUGS (2)
  1. DAUNORUBICIN HCL [Suspect]
     Indication: ACUTE LEUKAEMIA
     Dosage: UNK
     Route: 065
     Dates: start: 20070413
  2. EVOLTRA [Suspect]
     Indication: ACUTE LEUKAEMIA
     Dosage: UNK
     Route: 065
     Dates: start: 20070413

REACTIONS (3)
  - NEUTROPENIA [None]
  - CLOSTRIDIUM DIFFICILE COLITIS [None]
  - MULTI-ORGAN FAILURE [None]
